FAERS Safety Report 5392618-7 (Version None)
Quarter: 2007Q3

REPORT INFORMATION
  Report Type: 
  Country: None (occurrence: None)
  Receive Date: 20070720
  Receipt Date: 20070718
  Transmission Date: 20080115
  Serious: Yes (Life-Threatening, Hospitalization, Disabling)
  Sender: FDA-Public Use
  Company Number: US-MERCK-0707USA00841

PATIENT
  Age: 87 Year
  Sex: Male
  Weight: 70 kg

DRUGS (9)
  1. JANUVIA [Suspect]
     Indication: TYPE 2 DIABETES MELLITUS
     Route: 048
     Dates: start: 20070515, end: 20070605
  2. COREG [Concomitant]
     Route: 065
  3. IMDUR [Concomitant]
     Route: 065
  4. PRANDIN [Concomitant]
     Route: 065
  5. ZOCOR [Concomitant]
     Route: 048
  6. LASIX [Concomitant]
     Route: 065
  7. K-DUR 10 [Concomitant]
     Route: 065
  8. VASOTEC [Concomitant]
     Route: 048
  9. ZYLOPRIM [Concomitant]
     Route: 065

REACTIONS (2)
  - CARDIAC FAILURE [None]
  - DYSPNOEA [None]
